FAERS Safety Report 4303305-8 (Version None)
Quarter: 2004Q1

REPORT INFORMATION
  Report Type: 
  Country: None (occurrence: None)
  Receive Date: 20040223
  Receipt Date: 20040209
  Transmission Date: 20041129
  Serious: Yes (Congenital Anomaly)
  Sender: FDA-Public Use
  Company Number: 2004198825GB

PATIENT
  Age: 7 Month
  Sex: Female
  Weight: 1.4 kg

DRUGS (5)
  1. METHYLPREDNISOLONE [Suspect]
     Dosage: 1 G, QD, IV
     Route: 042
  2. DELTA-CORTEF [Suspect]
     Dosage: 60 MG, ORAL
     Route: 048
  3. CYCLOPHOSPHAMIDE [Suspect]
     Dosage: 1 G, IV
     Route: 042
  4. SULFAMETHOXAZOLE + TRIMETHOPRIM [Suspect]
     Indication: PROPHYLAXIS
  5. ANTIFUNGALS FOR SYSTEMIC USE [Suspect]
     Dosage: ORAL
     Route: 048

REACTIONS (4)
  - DRUG EXPOSURE DURING PREGNANCY [None]
  - PREMATURE BABY [None]
  - SMALL FOR DATES BABY [None]
  - SOLITARY KIDNEY [None]
